FAERS Safety Report 10706526 (Version 1)
Quarter: 2015Q1

REPORT INFORMATION
  Report Type: Spontaneous
  Country: US (occurrence: None)
  Receive Date: 20150109
  Receipt Date: 20150109
  Transmission Date: 20150721
  Serious: Yes (Life-Threatening, Disabling)
  Sender: FDA-Public Use
  Company Number: None

PATIENT
  Age: 31 Year
  Sex: Female

DRUGS (1)
  1. GENERIC ADDERALL XR 30MG [Suspect]
     Active Substance: AMPHETAMINE ASPARTATE\AMPHETAMINE SULFATE\DEXTROAMPHETAMINE SACCHARATE\DEXTROAMPHETAMINE SULFATE
     Dosage: ONCE DAILY
     Route: 048

REACTIONS (5)
  - Product quality issue [None]
  - Product substitution issue [None]
  - Drug ineffective [None]
  - Depression [None]
  - Headache [None]

NARRATIVE: CASE EVENT DATE: 20141103
